FAERS Safety Report 18741219 (Version 1)
Quarter: 2021Q1

REPORT INFORMATION
  Report Type: Spontaneous
  Country: US (occurrence: US)
  Receive Date: 20210114
  Receipt Date: 20210114
  Transmission Date: 20210419
  Serious: Yes (Other)
  Sender: FDA-Public Use
  Company Number: None

PATIENT
  Age: 50 Year
  Sex: Female
  Weight: 101.25 kg

DRUGS (10)
  1. ZITHROMAX [Concomitant]
     Active Substance: AZITHROMYCIN DIHYDRATE
  2. MEDROL [Concomitant]
     Active Substance: METHYLPREDNISOLONE
  3. VITAMIN D3 [Concomitant]
     Active Substance: CHOLECALCIFEROL
  4. GUAIFENISIN/CODEINE [Concomitant]
  5. ATORVASTATIN [Concomitant]
     Active Substance: ATORVASTATIN
  6. BAMLANIVIMAB INFUSION [Suspect]
     Active Substance: BAMLANIVIMAB
     Indication: COVID-19
     Dates: start: 20210111, end: 20210111
  7. VITAMIN C [Concomitant]
     Active Substance: ASCORBIC ACID
  8. HYDROXYCHLOROQUINE [Concomitant]
     Active Substance: HYDROXYCHLOROQUINE
  9. MULTIVITAMIN [Concomitant]
     Active Substance: VITAMINS
  10. CERTIZINE [Concomitant]

REACTIONS (2)
  - Body temperature increased [None]
  - Headache [None]

NARRATIVE: CASE EVENT DATE: 20210111
